FAERS Safety Report 17301502 (Version 1)
Quarter: 2020Q1

REPORT INFORMATION
  Report Type: Spontaneous
  Country: GB (occurrence: GB)
  Receive Date: 20200122
  Receipt Date: 20200122
  Transmission Date: 20200409
  Serious: Yes (Other)
  Sender: FDA-Public Use
  Company Number: GB-MYLANLABS-2020M1005951

PATIENT
  Sex: Female

DRUGS (2)
  1. CLOZARIL [Suspect]
     Active Substance: CLOZAPINE
     Indication: SCHIZOPHRENIA
     Dosage: 300 MILLIGRAM
     Route: 048
     Dates: start: 20190708
  2. CLOZARIL [Suspect]
     Active Substance: CLOZAPINE
     Dosage: 25 MILLIGRAM
     Route: 048
     Dates: end: 20200112

REACTIONS (6)
  - Malaise [Unknown]
  - Dysphonia [Unknown]
  - Adverse drug reaction [Unknown]
  - Agitation [Unknown]
  - Schizophrenia [Unknown]
  - Dissociation [Unknown]

NARRATIVE: CASE EVENT DATE: 20200114
